FAERS Safety Report 14922966 (Version 6)
Quarter: 2019Q2

REPORT INFORMATION
  Report Type: Spontaneous
  Country: JP (occurrence: JP)
  Receive Date: 20180522
  Receipt Date: 20190614
  Transmission Date: 20190711
  Serious: Yes (Hospitalization, Other)
  Sender: FDA-Public Use
  Company Number: PHJP2018JP010761

PATIENT
  Age: 38 Year
  Sex: Female
  Weight: 86.7 kg

DRUGS (10)
  1. MERISLON [Concomitant]
     Active Substance: BETAHISTINE MESILATE
     Indication: PRODUCT USED FOR UNKNOWN INDICATION
     Dosage: 6 MG, TID
     Route: 048
     Dates: start: 20140202
  2. MAGMITT [Concomitant]
     Active Substance: MAGNESIUM OXIDE
     Indication: PRODUCT USED FOR UNKNOWN INDICATION
     Dosage: 250 MG, TID
     Route: 048
     Dates: start: 20140622
  3. NEXIUM [Concomitant]
     Active Substance: ESOMEPRAZOLE MAGNESIUM
     Indication: PRODUCT USED FOR UNKNOWN INDICATION
     Dosage: 20 MG, QD
     Route: 048
     Dates: start: 20140827
  4. JZOLOFT [Concomitant]
     Active Substance: SERTRALINE HYDROCHLORIDE
     Indication: PRODUCT USED FOR UNKNOWN INDICATION
     Dosage: 25 MG, QD
     Route: 048
     Dates: start: 20150202
  5. INTERFERON BETA 1B [Concomitant]
     Active Substance: INTERFERON BETA-1B
     Indication: MULTIPLE SCLEROSIS
     Dosage: UNK
     Route: 065
     Dates: start: 201103, end: 20140609
  6. ADETPHOS [Concomitant]
     Active Substance: ADENOSINE TRIPHOSPHATE
     Indication: PRODUCT USED FOR UNKNOWN INDICATION
     Dosage: 100 MG, TID
     Route: 048
     Dates: start: 20140221
  7. GILENYA [Suspect]
     Active Substance: FINGOLIMOD HYDROCHLORIDE
     Indication: MULTIPLE SCLEROSIS
     Dosage: 0.5 MG, QD
     Route: 048
     Dates: start: 20140602, end: 20170307
  8. REBAMIPIDE [Concomitant]
     Active Substance: REBAMIPIDE
     Indication: PRODUCT USED FOR UNKNOWN INDICATION
     Dosage: 100 MG, TID
     Route: 048
     Dates: start: 20140202
  9. AMANTADINE HYDROCHLORIDE. [Concomitant]
     Active Substance: AMANTADINE HYDROCHLORIDE
     Indication: PRODUCT USED FOR UNKNOWN INDICATION
     Dosage: 50 MG, TID
     Route: 048
     Dates: start: 20140202
  10. CEPHADOL [Concomitant]
     Active Substance: DIPHENIDOL HYDROCHLORIDE
     Indication: PRODUCT USED FOR UNKNOWN INDICATION
     Dosage: 25 MG, TID
     Route: 048
     Dates: start: 20140221

REACTIONS (10)
  - Limb discomfort [Unknown]
  - Rebound effect [Recovered/Resolved]
  - Hypoaesthesia [Recovered/Resolved]
  - Hemiplegia [Recovered/Resolved]
  - Tumefactive multiple sclerosis [Recovering/Resolving]
  - Lymphopenia [Recovered/Resolved]
  - Central nervous system lesion [Unknown]
  - Gait disturbance [Recovered/Resolved]
  - Muscular weakness [Recovered/Resolved]
  - Multiple sclerosis relapse [Recovered/Resolved]

NARRATIVE: CASE EVENT DATE: 20170307
